FAERS Safety Report 8599269 (Version 4)
Quarter: 2014Q1

REPORT INFORMATION
  Report Type: Spontaneous
  Country: US (occurrence: US)
  Receive Date: 20120605
  Receipt Date: 20140203
  Transmission Date: 20141002
  Serious: No
  Sender: FDA-Public Use
  Company Number: US-PFIZER INC-2012129898

PATIENT
  Age: 63 Year
  Sex: Female
  Weight: 81.63 kg

DRUGS (7)
  1. NORVASC [Suspect]
     Indication: HYPERTENSION
     Dosage: 5 MG, DAILY
     Route: 048
     Dates: start: 20120213
  2. NORVASC [Suspect]
     Dosage: 10 MG, DAILY
     Dates: end: 20120417
  3. SIMVASTATIN [Concomitant]
     Dosage: 20 MG, 1X/DAY
     Route: 048
     Dates: start: 20120306
  4. CALTRATE [Concomitant]
     Dosage: 1 DF, 1X/DAY
     Route: 048
     Dates: start: 20091102
  5. FISH OIL [Concomitant]
     Dosage: 1 DF, 1X/DAY
     Dates: start: 20091102
  6. LEVOTHYROXINE SODIUM [Concomitant]
     Dosage: 112 UG, 1X/DAY
     Route: 048
     Dates: start: 20100210
  7. VITAMIN B12 [Concomitant]
     Dosage: 500 UG, 1X/DAY
     Route: 048
     Dates: start: 20091102

REACTIONS (4)
  - Local swelling [Recovered/Resolved]
  - Oedema [Unknown]
  - Pain in extremity [Unknown]
  - Blood pressure inadequately controlled [Recovered/Resolved]
